FAERS Safety Report 17360545 (Version 1)
Quarter: 2020Q1

REPORT INFORMATION
  Report Type: Spontaneous
  Country: US (occurrence: US)
  Receive Date: 20200117
  Receipt Date: 20200117
  Transmission Date: 20200409
  Serious: Yes (Hospitalization)
  Sender: FDA-Public Use
  Company Number: None

PATIENT
  Age: 58 Year
  Sex: Male

DRUGS (12)
  1. PREDNISONE. [Concomitant]
     Active Substance: PREDNISONE
  2. ALPRAZOLAM. [Concomitant]
     Active Substance: ALPRAZOLAM
  3. HUMIRA [Suspect]
     Active Substance: ADALIMUMAB
     Dosage: ?          OTHER DOSE:40/0.4 MG/ML ;?
     Route: 058
     Dates: start: 20190523
  4. OXYCODONE AND ACETAMINOPHEN [Concomitant]
     Active Substance: ACETAMINOPHEN\OXYCODONE HYDROCHLORIDE
  5. INCRUSE ELPT INH [Concomitant]
  6. FUROSEMIDE. [Concomitant]
     Active Substance: FUROSEMIDE
  7. AMITRIPTYLIN [Concomitant]
     Active Substance: AMITRIPTYLINE
  8. ALENDRONATE [Concomitant]
     Active Substance: ALENDRONATE SODIUM
  9. LEVEMIR  INJ  FLEXTOUC [Concomitant]
  10. CEPHALEXIN. [Concomitant]
     Active Substance: CEPHALEXIN
  11. OXYBUTYNIN. [Concomitant]
     Active Substance: OXYBUTYNIN CHLORIDE
  12. MORPHINE SUL [Concomitant]
     Active Substance: MORPHINE SULFATE

REACTIONS (3)
  - Abdominal distension [None]
  - Oxygen saturation abnormal [None]
  - Hallucination [None]

NARRATIVE: CASE EVENT DATE: 20200115
